FAERS Safety Report 6540422-6 (Version None)
Quarter: 2010Q1

REPORT INFORMATION
  Report Type: 
  Country: None (occurrence: None)
  Receive Date: 20100113
  Receipt Date: 20100106
  Transmission Date: 20100710
  Serious: Yes (Hospitalization)
  Sender: FDA-Public Use
  Company Number: TRP_06120_2009

PATIENT
  Sex: Male

DRUGS (4)
  1. RIBASPHERE [Suspect]
     Indication: HEPATITIS C
     Dosage: 1200 MG, DAILY [DISCONTINUED FOR 2 WEEKS] 1200 MG, DAILY
     Dates: start: 20081117, end: 20090101
  2. RIBASPHERE [Suspect]
     Indication: HEPATITIS C
     Dosage: 1200 MG, DAILY [DISCONTINUED FOR 2 WEEKS] 1200 MG, DAILY
     Dates: start: 20090119
  3. PEGASYS [Suspect]
     Indication: HEPATITIS C
     Dosage: 180 UG [DISCONTINUED FOR 2 WEEKS], 180 UG
     Dates: start: 20081117, end: 20090101
  4. PEGASYS [Suspect]
     Indication: HEPATITIS C
     Dosage: 180 UG [DISCONTINUED FOR 2 WEEKS], 180 UG
     Dates: start: 20090119

REACTIONS (4)
  - DIARRHOEA [None]
  - SALMONELLOSIS [None]
  - SLUGGISHNESS [None]
  - TINNITUS [None]
